FAERS Safety Report 9685301 (Version 1)
Quarter: 2013Q4

REPORT INFORMATION
  Report Type: Spontaneous
  Country: US (occurrence: None)
  Receive Date: 20131112
  Receipt Date: 20131112
  Transmission Date: 20140711
  Serious: Yes (Other)
  Sender: FDA-Public Use
  Company Number: None

PATIENT
  Age: 24 Year
  Sex: Female
  Weight: 61.51 kg

DRUGS (6)
  1. RISPERDAL 1MG [Suspect]
     Indication: DEPRESSION
     Route: 048
     Dates: start: 20130927
  2. RISPERDAL 1MG [Suspect]
     Indication: PSYCHOTIC DISORDER
     Route: 048
     Dates: start: 20130927
  3. ZOLOFT [Concomitant]
  4. PREDNISONE [Concomitant]
  5. IBUPROFEN [Concomitant]
  6. IRON [Concomitant]

REACTIONS (2)
  - Breast enlargement [None]
  - Lactation disorder [None]
